FAERS Safety Report 4714184-9 (Version None)
Quarter: 2005Q3

REPORT INFORMATION
  Report Type: 
  Country: None (occurrence: None)
  Receive Date: 20050713
  Receipt Date: 20050713
  Transmission Date: 20060218
  Serious: Yes (Death)
  Sender: FDA-Public Use
  Company Number: None

PATIENT
  Sex: Female
  Weight: 77.5 kg

DRUGS (6)
  1. CYTARABINE [Suspect]
     Indication: ACUTE LYMPHOCYTIC LEUKAEMIA
     Dosage: 70 MG ON DAY ONE
     Route: 037
     Dates: start: 20050615
  2. VINCRISTINE [Suspect]
     Dosage: 1.5MG/M2 IV PUSH DAYS 1,8
     Route: 042
     Dates: start: 20050615, end: 20050622
  3. DEXAMETHASONE [Suspect]
     Dosage: 10MG/M2 PO BID DAILY (14 DAYS)
     Route: 048
     Dates: start: 20050615, end: 20050625
  4. METHOTREXATE [Suspect]
     Dosage: 15 MG DAY 8
     Route: 037
     Dates: start: 20050622, end: 20050622
  5. . [Concomitant]
  6. . [Concomitant]

REACTIONS (3)
  - GASTROINTESTINAL DISORDER [None]
  - GASTROINTESTINAL HAEMORRHAGE [None]
  - NECROSIS ISCHAEMIC [None]
